FAERS Safety Report 6649739-8 (Version None)
Quarter: 2010Q1

REPORT INFORMATION
  Report Type: 
  Country: None (occurrence: None)
  Receive Date: 20100324
  Receipt Date: 20100324
  Transmission Date: 20100710
  Serious: Yes (Hospitalization)
  Sender: FDA-Public Use
  Company Number: None

PATIENT
  Age: 87 Year
  Sex: Male
  Weight: 63.5 kg

DRUGS (2)
  1. PYRIDOSTIGMINE BROMIDE [Suspect]
     Indication: HYPERTENSION
     Dosage: 60 MG QID PO
     Route: 048
     Dates: start: 20091209, end: 20091221
  2. CARBIDOPA-LEVODOPA [Suspect]
     Indication: PARKINSON'S DISEASE
     Dosage: 25/100 MG TID PO
     Route: 048
     Dates: start: 20091203, end: 20091211

REACTIONS (3)
  - BRADYCARDIA [None]
  - ORTHOSTATIC HYPOTENSION [None]
  - UNEVALUABLE EVENT [None]
